FAERS Safety Report 8169760-0 (Version None)
Quarter: 2012Q1

REPORT INFORMATION
  Report Type: 
  Country: None (occurrence: None)
  Receive Date: 20120228
  Receipt Date: 20120221
  Transmission Date: 20120608
  Serious: No
  Sender: FDA-Public Use
  Company Number: JP-JNJFOC-20120212990

PATIENT
  Age: 77 Year
  Sex: Male

DRUGS (2)
  1. REMICADE [Suspect]
     Indication: RHEUMATOID ARTHRITIS
     Route: 042
     Dates: start: 20110315, end: 20110315
  2. REMICADE [Suspect]
     Route: 042
     Dates: start: 20110201

REACTIONS (1)
  - HERPES ZOSTER [None]
